FAERS Safety Report 12286272 (Version 1)
Quarter: 2016Q2

REPORT INFORMATION
  Report Type: Spontaneous
  Country: US (occurrence: US)
  Receive Date: 20160420
  Receipt Date: 20160420
  Transmission Date: 20160815
  Serious: No
  Sender: FDA-Public Use
  Company Number: US-PFIZER INC-2016175603

PATIENT
  Sex: Male

DRUGS (1)
  1. EPLERENONE. [Suspect]
     Active Substance: EPLERENONE
     Indication: BLOOD PRESSURE MEASUREMENT
     Dosage: UNK

REACTIONS (1)
  - Gynaecomastia [Unknown]
